FAERS Safety Report 13485130 (Version 4)
Quarter: 2018Q4

REPORT INFORMATION
  Report Type: Spontaneous
  Country: FR (occurrence: FR)
  Receive Date: 20170425
  Receipt Date: 20181205
  Transmission Date: 20190204
  Serious: Yes (Other)
  Sender: FDA-Public Use
  Company Number: FR-009507513-1609FRA012671

PATIENT
  Age: 31 Year
  Sex: Female

DRUGS (1)
  1. NUVARING [Suspect]
     Active Substance: ETHINYL ESTRADIOL\ETONOGESTREL
     Indication: CONTRACEPTION
     Dosage: 1 RING
     Route: 067
     Dates: start: 20160411, end: 20160415

REACTIONS (3)
  - Urticaria [Recovered/Resolved]
  - Lip oedema [Recovered/Resolved]
  - Painful respiration [Recovered/Resolved]

NARRATIVE: CASE EVENT DATE: 20160415
